FAERS Safety Report 19588155 (Version 2)
Quarter: 2021Q3

REPORT INFORMATION
  Report Type: Report from Study
  Country: JP (occurrence: JP)
  Receive Date: 20210721
  Receipt Date: 20210812
  Transmission Date: 20211014
  Serious: No
  Sender: FDA-Public Use
  Company Number: JP-GLAXOSMITHKLINE-JP2021JPN057935

PATIENT
  Age: 56 Year
  Sex: Male
  Weight: 68 kg

DRUGS (32)
  1. MEPOLIZUMAB [Suspect]
     Active Substance: MEPOLIZUMAB
     Dosage: 300 MG
     Route: 058
     Dates: start: 20200708, end: 20200708
  2. IMURAN [Concomitant]
     Active Substance: AZATHIOPRINE
     Indication: EOSINOPHILIC GRANULOMATOSIS WITH POLYANGIITIS
     Dosage: 50 MG, 1D
     Dates: end: 20200512
  3. METHYCOBAL TABLET [Concomitant]
     Indication: EOSINOPHILIC GRANULOMATOSIS WITH POLYANGIITIS
     Dosage: 1500 ?G, 1D
  4. MEPOLIZUMAB [Suspect]
     Active Substance: MEPOLIZUMAB
     Dosage: 300 MG
     Route: 058
     Dates: start: 20200610, end: 20200610
  5. PREDONINE [Concomitant]
     Active Substance: PREDNISOLONE
     Indication: EOSINOPHILIC GRANULOMATOSIS WITH POLYANGIITIS
     Dosage: 7.5 MG, 1D
     Dates: end: 20190911
  6. PREDONINE [Concomitant]
     Active Substance: PREDNISOLONE
     Dosage: 6 MG, 1D
     Dates: start: 20191107, end: 20200331
  7. MEPOLIZUMAB [Suspect]
     Active Substance: MEPOLIZUMAB
     Dosage: 300 MG
     Route: 058
     Dates: start: 20191106, end: 20191106
  8. MEPOLIZUMAB [Suspect]
     Active Substance: MEPOLIZUMAB
     Dosage: 300 MG
     Route: 058
     Dates: start: 20200205, end: 20200205
  9. PREDONINE [Concomitant]
     Active Substance: PREDNISOLONE
     Dosage: 7 MG, 1D
     Dates: start: 20190912, end: 20191106
  10. PREDONINE [Concomitant]
     Active Substance: PREDNISOLONE
     Dosage: 5 MG, 1D
     Dates: start: 20200401
  11. MEPOLIZUMAB [Suspect]
     Active Substance: MEPOLIZUMAB
     Dosage: 300 MG
     Route: 058
     Dates: start: 20191009, end: 20191009
  12. PREDONINE [Concomitant]
     Active Substance: PREDNISOLONE
     Dosage: 3 MG, QD
  13. SYMBICORT [Concomitant]
     Active Substance: BUDESONIDE\FORMOTEROL FUMARATE DIHYDRATE
     Indication: EOSINOPHILIC GRANULOMATOSIS WITH POLYANGIITIS
     Dosage: 640 ?G, 1D
     Route: 055
  14. PREDNISOLONE TABLETS [Concomitant]
     Active Substance: PREDNISOLONE
     Indication: EOSINOPHILIC GRANULOMATOSIS WITH POLYANGIITIS
     Dosage: 7.5 MG, 1D
     Dates: end: 20190911
  15. PREDNISOLONE TABLETS [Concomitant]
     Active Substance: PREDNISOLONE
     Dosage: 7.0 MG, 1D
     Dates: start: 20190912, end: 20191106
  16. JANUVIA TABLET (SITAGLIPTIN PHOSPHATE HYDRATE) [Concomitant]
  17. MEPOLIZUMAB [Suspect]
     Active Substance: MEPOLIZUMAB
     Dosage: 300 MG
     Route: 058
     Dates: start: 20200304, end: 20200304
  18. PREDNISOLONE TABLETS [Concomitant]
     Active Substance: PREDNISOLONE
     Dosage: 6.0 MG, 1D
     Dates: start: 20191107
  19. BAKTAR COMBINATION TABLETS [Concomitant]
     Active Substance: SULFAMETHOXAZOLE\TRIMETHOPRIM
     Indication: ANTIFUNGAL PROPHYLAXIS
  20. MEPOLIZUMAB [Suspect]
     Active Substance: MEPOLIZUMAB
     Dosage: 300 MG
     Route: 058
     Dates: start: 20200401, end: 20200401
  21. IMURAN [Concomitant]
     Active Substance: AZATHIOPRINE
     Dosage: 50 MG, QD
  22. AMLODIPINE BESILATE TABLET [Concomitant]
     Active Substance: AMLODIPINE BESYLATE
     Indication: HYPERTENSION
     Dosage: 2.5 MG, QD
  23. MAGMITT [Concomitant]
     Active Substance: MAGNESIUM OXIDE
     Indication: CONSTIPATION
  24. MEPOLIZUMAB [Suspect]
     Active Substance: MEPOLIZUMAB
     Dosage: 300 MG
     Route: 058
     Dates: start: 20200513, end: 20200513
  25. NUCALA [Concomitant]
     Active Substance: MEPOLIZUMAB
     Indication: EOSINOPHILIC GRANULOMATOSIS WITH POLYANGIITIS
     Dosage: 300 MG, 300 MG, ONCE FOUR WEEKS
     Dates: start: 20200805
  26. NEXIUM [Concomitant]
     Active Substance: ESOMEPRAZOLE MAGNESIUM
     Indication: GASTRITIS PROPHYLAXIS
     Dosage: 20 MG, QD
  27. ROSUVASTATIN CALCIUM TABLETS [Concomitant]
     Active Substance: ROSUVASTATIN CALCIUM
     Indication: HYPERCHOLESTEROLAEMIA
     Dosage: 1 DF, QD
  28. MEPOLIZUMAB [Suspect]
     Active Substance: MEPOLIZUMAB
     Indication: EOSINOPHILIC GRANULOMATOSIS WITH POLYANGIITIS
     Dosage: 300 MG
     Route: 058
     Dates: start: 20190911, end: 20190911
  29. MEPOLIZUMAB [Suspect]
     Active Substance: MEPOLIZUMAB
     Dosage: 300 MG
     Route: 058
     Dates: start: 20191204, end: 20191204
  30. MEPOLIZUMAB [Suspect]
     Active Substance: MEPOLIZUMAB
     Dosage: 300 MG
     Route: 058
     Dates: start: 20200108, end: 20200108
  31. IMURAN [Concomitant]
     Active Substance: AZATHIOPRINE
     Dosage: 75 MG, 1D
     Dates: start: 20200513
  32. ALENDRONATE SODIUM TABLET [Concomitant]
     Active Substance: ALENDRONATE SODIUM
     Indication: OSTEOPOROSIS PROPHYLAXIS
     Dosage: 35 MG ONCE A MONTH

REACTIONS (2)
  - Inappropriate schedule of product administration [Unknown]
  - Off label use [Unknown]

NARRATIVE: CASE EVENT DATE: 20200513
